FAERS Safety Report 22304345 (Version 1)
Quarter: 2023Q2

REPORT INFORMATION
  Report Type: Spontaneous
  Country: US (occurrence: None)
  Receive Date: 20230509
  Receipt Date: 20230509
  Transmission Date: 20230721
  Serious: Yes (Life-Threatening, Hospitalization, Disabling)
  Sender: FDA-Public Use
  Company Number: None

PATIENT
  Age: 55 Year
  Sex: Female
  Weight: 126 kg

DRUGS (1)
  1. DIETARY SUPPLEMENT [Suspect]
     Active Substance: DIETARY SUPPLEMENT
     Indication: Arthritis
     Dates: start: 20200116, end: 20230111

REACTIONS (11)
  - Dyspnoea [None]
  - Furuncle [None]
  - Septic shock [None]
  - Necrotising fasciitis [None]
  - Dialysis [None]
  - Monoplegia [None]
  - Monoplegia [None]
  - Staphylococcal infection [None]
  - Culture wound positive [None]
  - Cushing^s syndrome [None]
  - Cardiac disorder [None]

NARRATIVE: CASE EVENT DATE: 20230112
